FAERS Safety Report 8270335-3 (Version None)
Quarter: 2012Q2

REPORT INFORMATION
  Report Type: 
  Country: None (occurrence: None)
  Receive Date: 20120410
  Receipt Date: 20120329
  Transmission Date: 20120825
  Serious: Yes (Other)
  Sender: FDA-Public Use
  Company Number: US-SANOFI-AVENTIS-2012SA022198

PATIENT
  Age: 32 Year
  Sex: Male

DRUGS (1)
  1. ALLEGRA-D 12 HOUR [Suspect]
     Route: 048
     Dates: start: 20120327

REACTIONS (2)
  - GAIT DISTURBANCE [None]
  - HYPOAESTHESIA [None]
